FAERS Safety Report 5485892-X (Version None)
Quarter: 2007Q4

REPORT INFORMATION
  Report Type: 
  Country: None (occurrence: None)
  Receive Date: 20071015
  Receipt Date: 20071012
  Transmission Date: 20080405
  Serious: Yes (Death)
  Sender: FDA-Public Use
  Company Number: GB-ROXANE LABORATORIES, INC-2007-UK-03216UK

PATIENT
  Age: 47 Year
  Sex: Male

DRUGS (6)
  1. MORPHINE [Suspect]
  2. CODEINE SUL TAB [Suspect]
  3. HEMINEVRIN [Suspect]
     Route: 048
  4. ETHANOL [Suspect]
  5. OPIATE [Concomitant]
  6. BENZODIAZEPINE [Concomitant]

REACTIONS (4)
  - ALCOHOL POISONING [None]
  - DRUG ABUSER [None]
  - DRUG INTERACTION [None]
  - DRUG TOXICITY [None]
